FAERS Safety Report 4317905-2 (Version None)
Quarter: 2004Q1

REPORT INFORMATION
  Report Type: 
  Country: None (occurrence: None)
  Receive Date: 20040316
  Receipt Date: 20040216
  Transmission Date: 20041129
  Serious: Yes (Hospitalization)
  Sender: FDA-Public Use
  Company Number: FR-ROCHE-358855

PATIENT
  Age: 84 Year
  Sex: Female

DRUGS (6)
  1. ROCEPHIN [Suspect]
     Indication: DRUG USE FOR UNKNOWN INDICATION
     Route: 042
     Dates: start: 20040101, end: 20040102
  2. AUGMENTIN [Suspect]
     Indication: DRUG USE FOR UNKNOWN INDICATION
     Route: 048
     Dates: start: 20031228, end: 20040101
  3. AUGMENTIN [Suspect]
     Route: 048
     Dates: start: 20040102
  4. FLAGYL [Concomitant]
     Indication: SIGMOIDITIS
     Route: 048
     Dates: start: 20040102, end: 20040112
  5. COVERSYL [Concomitant]
     Indication: CARDIOMYOPATHY
     Route: 048
  6. LASILIX [Concomitant]

REACTIONS (1)
  - DERMATITIS BULLOUS [None]
